FAERS Safety Report 4692072-4 (Version None)
Quarter: 2005Q2

REPORT INFORMATION
  Report Type: 
  Country: None (occurrence: None)
  Receive Date: 20050616
  Receipt Date: 20050616
  Transmission Date: 20051028
  Serious: Yes (Disabling)
  Sender: FDA-Public Use
  Company Number: None

PATIENT
  Age: 45 Year
  Sex: Female
  Weight: 68.0396 kg

DRUGS (2)
  1. LUPRON DEPOT [Suspect]
     Dosage: 11.25 MG. 3 MONTH SUPPLY INTRAMUSCULA
     Route: 030
     Dates: start: 20031101, end: 20040609
  2. LUPRON DEPOT [Suspect]
     Dosage: 3.75 MG 1 MONTH SUPPLY INTRAMUSCULA
     Route: 030

REACTIONS (6)
  - AMNESIA [None]
  - ARTHRALGIA [None]
  - BONE PAIN [None]
  - DEPRESSION [None]
  - FATIGUE [None]
  - MUSCULAR WEAKNESS [None]
